FAERS Safety Report 6704631-5 (Version None)
Quarter: 2010Q2

REPORT INFORMATION
  Report Type: 
  Country: None (occurrence: None)
  Receive Date: 20100430
  Receipt Date: 20100420
  Transmission Date: 20101027
  Serious: Yes (Other)
  Sender: FDA-Public Use
  Company Number: US-JNJFOC-20100406480

PATIENT
  Sex: Male
  Weight: 104.33 kg

DRUGS (2)
  1. MOTRIN [Suspect]
     Indication: ARTHRALGIA
     Route: 048
  2. MOTRIN [Suspect]
     Indication: PYREXIA
     Route: 048

REACTIONS (2)
  - CARDIAC FAILURE CONGESTIVE [None]
  - OEDEMA PERIPHERAL [None]
